FAERS Safety Report 5208755-3 (Version None)
Quarter: 2007Q1

REPORT INFORMATION
  Report Type: 
  Country: None (occurrence: None)
  Receive Date: 20070116
  Receipt Date: 20070112
  Transmission Date: 20070707
  Serious: Yes (Hospitalization)
  Sender: FDA-Public Use
  Company Number: DE-BAYER-200610630BVD

PATIENT
  Age: 60 Year
  Sex: Male
  Weight: 75 kg

DRUGS (4)
  1. VARDENAFIL [Suspect]
     Indication: ERECTILE DYSFUNCTION
     Route: 048
     Dates: start: 20060309
  2. PLACEBO TO VARDENAFIL [Suspect]
     Indication: ERECTILE DYSFUNCTION
  3. PLACEBO TO VARDENAFIL [Suspect]
     Route: 048
     Dates: start: 20060408, end: 20060408
  4. PLACEBO TO VARDENAFIL [Suspect]
     Route: 048
     Dates: start: 20060409, end: 20060409

REACTIONS (1)
  - CEREBROVASCULAR ACCIDENT [None]
